FAERS Safety Report 6692136-X (Version None)
Quarter: 2010Q2

REPORT INFORMATION
  Report Type: 
  Country: None (occurrence: None)
  Receive Date: 20100422
  Receipt Date: 20090330
  Transmission Date: 20101027
  Serious: No
  Sender: FDA-Public Use
  Company Number: US-ASTRAZENECA-2009UW08004

PATIENT
  Sex: Female

DRUGS (3)
  1. TOPROL-XL [Suspect]
     Route: 048
  2. COUMADIN [Concomitant]
  3. DIGOXIN [Concomitant]

REACTIONS (5)
  - ALOPECIA [None]
  - DRY EYE [None]
  - DRY MOUTH [None]
  - FLATULENCE [None]
  - NASAL DRYNESS [None]
